FAERS Safety Report 4768269-1 (Version None)
Quarter: 2005Q3

REPORT INFORMATION
  Report Type: 
  Country: None (occurrence: None)
  Receive Date: 20050909
  Receipt Date: 20050909
  Transmission Date: 20060218
  Serious: Yes (Hospitalization, Other)
  Sender: FDA-Public Use
  Company Number: None

PATIENT
  Sex: Male
  Weight: 43 kg

DRUGS (1)
  1. FLUOROURACIL [Suspect]
     Indication: GASTRIC CANCER
     Dosage: SEE IMAGE
     Dates: start: 20050727, end: 20050830

REACTIONS (8)
  - ASTHENIA [None]
  - DEHYDRATION [None]
  - MUCOSAL INFLAMMATION [None]
  - ORAL INTAKE REDUCED [None]
  - PENIS DISORDER [None]
  - RASH [None]
  - SKIN REACTION [None]
  - STOMATITIS [None]
